FAERS Safety Report 14331899 (Version 1)
Quarter: 2017Q4

REPORT INFORMATION
  Report Type: Spontaneous
  Country: US (occurrence: US)
  Receive Date: 20171227
  Receipt Date: 20171227
  Transmission Date: 20180321
  Serious: Yes (Disabling)
  Sender: FDA-Public Use
  Company Number: None

PATIENT
  Age: 49 Year
  Sex: Female
  Weight: 58.5 kg

DRUGS (1)
  1. MEROPENEM. [Suspect]
     Active Substance: MEROPENEM
     Indication: SEPSIS

REACTIONS (4)
  - Autonomic nervous system imbalance [None]
  - Heart rate increased [None]
  - Dyspnoea [None]
  - Impaired work ability [None]

NARRATIVE: CASE EVENT DATE: 20160902
